FAERS Safety Report 6848074-2 (Version None)
Quarter: 2010Q3

REPORT INFORMATION
  Report Type: 
  Country: None (occurrence: None)
  Receive Date: 20100716
  Receipt Date: 20100625
  Transmission Date: 20110219
  Serious: Yes (Hospitalization)
  Sender: FDA-Public Use
  Company Number: A0796412A

PATIENT
  Age: 57 Year
  Sex: Male
  Weight: 113.6 kg

DRUGS (6)
  1. AVANDIA [Suspect]
     Dosage: 8MG PER DAY
     Route: 048
     Dates: start: 20011101, end: 20070328
  2. ACCUPRIL [Concomitant]
  3. ASPIRIN [Concomitant]
  4. INSULIN [Concomitant]
  5. GLUCOTROL [Concomitant]
  6. GLUCOPHAGE [Concomitant]

REACTIONS (6)
  - CARDIAC DISORDER [None]
  - CARDIAC FAILURE CONGESTIVE [None]
  - CONDITION AGGRAVATED [None]
  - CORONARY ARTERY DISEASE [None]
  - ISCHAEMIC CARDIOMYOPATHY [None]
  - THROMBOSIS [None]
